FAERS Safety Report 8268479-5 (Version None)
Quarter: 2012Q2

REPORT INFORMATION
  Report Type: 
  Country: None (occurrence: None)
  Receive Date: 20120409
  Receipt Date: 20120402
  Transmission Date: 20120825
  Serious: Yes (Death, Hospitalization, Other)
  Sender: FDA-Public Use
  Company Number: PHEH2012US000748

PATIENT
  Sex: Male

DRUGS (17)
  1. PREVACID [Concomitant]
     Dosage: UNK UKN, UNK
  2. AMLODIPINE [Concomitant]
     Indication: HYPERTENSION
     Dosage: 10 MG, QD
     Route: 048
  3. HYDRALAZINE HCL [Concomitant]
     Indication: HYPERTENSION
     Dosage: 50 MG, TID
     Route: 048
  4. ZAROXOLYN [Concomitant]
  5. LYRICA [Concomitant]
     Dosage: 50 MG, BID
  6. FUROSEMIDE [Concomitant]
     Indication: CORONARY ARTERY DISEASE
     Dosage: 20 MG, BID
     Route: 048
  7. GILENYA [Suspect]
     Dosage: UNK UKN, UNK
     Route: 048
     Dates: start: 20110217
  8. ZOFRAN [Concomitant]
     Dosage: UNK UKN, UNK
  9. AMLODIPINE BESYLATE AND BENAZEPRIL HCL [Concomitant]
     Dosage: UNK UKN, UNK
  10. SIMVASTATIN [Concomitant]
     Dosage: 80 MG, DAILY
  11. HYDRALAZINE HCL [Concomitant]
     Dosage: 100 MG, TID
     Route: 048
  12. CALCITRIOL [Concomitant]
  13. CLONIDINE HYDROCHLORIDE [Concomitant]
     Indication: HYPERTENSION
     Dosage: 0.2 MG, DAILY
  14. METOPROLOL TARTRATE [Concomitant]
     Dosage: 50 MG, BID
     Route: 048
  15. POTASSIUM CHLORIDE [Concomitant]
     Indication: HYPERTENSION
     Dosage: 10 MEQ, BID
     Route: 048
  16. METOPROLOL TARTRATE [Concomitant]
     Indication: HYPERTENSION
     Dosage: 25 MG, DAILY
  17. CLONIDINE HYDROCHLORIDE [Concomitant]
     Dosage: 0.3 MG, TID
     Route: 048

REACTIONS (55)
  - FEELING ABNORMAL [None]
  - TRACHEAL HAEMORRHAGE [None]
  - DYSARTHRIA [None]
  - VISION BLURRED [None]
  - HYPOKALAEMIA [None]
  - BLOOD CREATININE INCREASED [None]
  - CARBON DIOXIDE INCREASED [None]
  - BLOOD ALBUMIN DECREASED [None]
  - VENTRICULAR EXTRASYSTOLES [None]
  - DEPRESSION [None]
  - COUGH [None]
  - RED CELL DISTRIBUTION WIDTH INCREASED [None]
  - DISTURBANCE IN ATTENTION [None]
  - POST PROCEDURAL HAEMORRHAGE [None]
  - AORTIC STENOSIS [None]
  - VENTRICULAR HYPERTROPHY [None]
  - BENIGN PROSTATIC HYPERPLASIA [None]
  - MALAISE [None]
  - BLOOD UREA INCREASED [None]
  - HAEMATOCRIT DECREASED [None]
  - MEAN CELL HAEMOGLOBIN CONCENTRATION DECREASED [None]
  - VOMITING [None]
  - BLOOD PARATHYROID HORMONE INCREASED [None]
  - GASTROINTESTINAL HAEMORRHAGE [None]
  - VISUAL IMPAIRMENT [None]
  - DYSPNOEA EXERTIONAL [None]
  - CARDIOMEGALY [None]
  - HEART RATE INCREASED [None]
  - DEATH [None]
  - VITAMIN D DEFICIENCY [None]
  - PULSELESS ELECTRICAL ACTIVITY [None]
  - VENTRICULAR TACHYCARDIA [None]
  - LEFT VENTRICLE OUTFLOW TRACT OBSTRUCTION [None]
  - RED BLOOD CELL COUNT DECREASED [None]
  - MEAN CELL HAEMOGLOBIN DECREASED [None]
  - LYMPHOCYTE COUNT DECREASED [None]
  - NAUSEA [None]
  - CONTUSION [None]
  - CEREBRAL HAEMORRHAGE [None]
  - PROTEINURIA [None]
  - MUSCLE ATROPHY [None]
  - MUSCLE SPASTICITY [None]
  - VIITH NERVE PARALYSIS [None]
  - HAEMORRHAGIC STROKE [None]
  - CARTILAGE INJURY [None]
  - CHRONIC RESPIRATORY FAILURE [None]
  - HYPERPARATHYROIDISM SECONDARY [None]
  - BLOOD PRESSURE INCREASED [None]
  - CARDIAC MURMUR [None]
  - OEDEMA PERIPHERAL [None]
  - BLOOD CHLORIDE DECREASED [None]
  - BLOOD GLUCOSE INCREASED [None]
  - GLOMERULAR FILTRATION RATE DECREASED [None]
  - HAEMOGLOBIN DECREASED [None]
  - GRANULOCYTES ABNORMAL [None]
